FAERS Safety Report 5129583-3 (Version None)
Quarter: 2006Q4

REPORT INFORMATION
  Report Type: 
  Country: None (occurrence: None)
  Receive Date: 20061012
  Receipt Date: 20060927
  Transmission Date: 20070319
  Serious: Yes (Death)
  Sender: FDA-Public Use
  Company Number: 2006S1009209

PATIENT
  Sex: Male

DRUGS (1)
  1. FENTANYL TRANSDERMAL SYSTEM [Suspect]
     Dosage: 50 UG/HR; UNKNOWN; TDER

REACTIONS (3)
  - ALCOHOL USE [None]
  - OVERDOSE [None]
  - SELF-MEDICATION [None]
